FAERS Safety Report 21585251 (Version 6)
Quarter: 2024Q2

REPORT INFORMATION
  Report Type: Report from Study
  Country: US (occurrence: US)
  Receive Date: 20221111
  Receipt Date: 20240415
  Transmission Date: 20240716
  Serious: Yes (Death, Other)
  Sender: FDA-Public Use
  Company Number: US-ABBVIE-22K-163-4537024-00

PATIENT
  Age: 80 Year
  Sex: Female
  Weight: 48 kg

DRUGS (12)
  1. VENCLEXTA [Suspect]
     Active Substance: VENETOCLAX
     Indication: Plasma cell myeloma
     Dosage: FORM STRENGTH 100 MILLIGRAM 4 TABLETS BY MOUTH EVERY DAY
     Route: 048
  2. VENCLEXTA [Suspect]
     Active Substance: VENETOCLAX
     Indication: Plasma cell myeloma
     Dosage: FORM STRENGTH 100 MILLIGRAM
     Route: 048
     Dates: start: 202208
  3. VENCLEXTA [Suspect]
     Active Substance: VENETOCLAX
     Indication: Plasma cell myeloma
     Dosage: FORM STRENGTH 100 MILLIGRAM
     Route: 048
  4. dulcolax [Concomitant]
     Indication: Constipation
     Dosage: DULCOLAX LAXATIVE; AS NEEDED
     Route: 054
  5. CALCIUM\VITAMIN D [Concomitant]
     Active Substance: CALCIUM\VITAMIN D
     Indication: Product used for unknown indication
     Dosage: TIME INTERVAL: 0.33333333 DAYS: 600MG-200MG UNITS TABLET
     Route: 048
  6. DOCUSATE SODIUM\SENNOSIDE A\SENNOSIDE B [Concomitant]
     Active Substance: DOCUSATE SODIUM\SENNOSIDE A\SENNOSIDE B
     Indication: Product used for unknown indication
     Dosage: 50MG-8.6MG TABLET; AT BEDIME
     Route: 048
  7. PERCOCET [Concomitant]
     Active Substance: ACETAMINOPHEN\OXYCODONE HYDROCHLORIDE
     Indication: Product used for unknown indication
     Dosage: 5MG-325MG TABLET, 1 IN FOUR HOURS
     Route: 048
  8. TYLENOL [Concomitant]
     Active Substance: ACETAMINOPHEN
     Indication: Product used for unknown indication
     Dosage: 1 IN FOUR HOURS
     Route: 048
  9. PROLIA [Concomitant]
     Active Substance: DENOSUMAB
     Indication: Product used for unknown indication
     Dosage: DOSAGE: 60 MG/ML SYRINGE 1ML
  10. DECADRON [Concomitant]
     Active Substance: DEXAMETHASONE
     Indication: Product used for unknown indication
     Dosage: TAKE 5 TABLETS
     Route: 048
  11. VITAMIN D2 [Concomitant]
     Active Substance: ERGOCALCIFEROL
     Indication: Product used for unknown indication
     Dosage: 1.25 MG/1250 MCG; AS DIRECTED
     Route: 048
  12. PERI-COLACE [Concomitant]
     Active Substance: CASANTHRANOL\DOCUSATE SODIUM
     Indication: Product used for unknown indication
     Dosage: 8.6-50MG TABLET; TAKE 2 TABLETS
     Route: 048

REACTIONS (12)
  - Death [Fatal]
  - Tooth extraction [Unknown]
  - Illness [Unknown]
  - Memory impairment [Unknown]
  - Tooth disorder [Unknown]
  - Incorrect dose administered [Unknown]
  - Off label use [Unknown]
  - Gingival pain [Unknown]
  - Toothache [Unknown]
  - Bone cancer [Unknown]
  - Ear pain [Unknown]
  - Gingival discomfort [Unknown]

NARRATIVE: CASE EVENT DATE: 20220801
